FAERS Safety Report 11432823 (Version 3)
Quarter: 2016Q1

REPORT INFORMATION
  Report Type: Report from Study
  Country: US (occurrence: US)
  Receive Date: 20150828
  Receipt Date: 20160103
  Transmission Date: 20160525
  Serious: Yes (Other)
  Sender: FDA-Public Use
  Company Number: US-AMGEN-USASP2015085851

PATIENT
  Age: 72 Year
  Sex: Female

DRUGS (1)
  1. ENBREL [Suspect]
     Active Substance: ETANERCEPT
     Indication: RHEUMATOID ARTHRITIS
     Dosage: 50 MG, QWK
     Route: 065
     Dates: start: 2003

REACTIONS (6)
  - Fatigue [Unknown]
  - Mobility decreased [Unknown]
  - Hip arthroplasty [Unknown]
  - Osteoarthritis [Unknown]
  - Gait disturbance [Unknown]
  - Impaired healing [Unknown]

NARRATIVE: CASE EVENT DATE: 20150811
